FAERS Safety Report 22757591 (Version 5)
Quarter: 2023Q4

REPORT INFORMATION
  Report Type: Spontaneous
  Country: US (occurrence: US)
  Receive Date: 20230727
  Receipt Date: 20231215
  Transmission Date: 20240110
  Serious: Yes (Other)
  Sender: FDA-Public Use
  Company Number: US-PFIZER INC-PV202300128482

PATIENT
  Age: 45 Year
  Sex: Female

DRUGS (1)
  1. XELJANZ XR [Suspect]
     Active Substance: TOFACITINIB CITRATE
     Dosage: 11 MG

REACTIONS (8)
  - Arthritis [Unknown]
  - Therapeutic product effect incomplete [Unknown]
  - Nasopharyngitis [Unknown]
  - Arthralgia [Unknown]
  - Pain in extremity [Unknown]
  - Malaise [Unknown]
  - Product dose omission issue [Unknown]
  - Sensitivity to weather change [Unknown]

NARRATIVE: CASE EVENT DATE: 20230601
